FAERS Safety Report 19058723 (Version 1)
Quarter: 2021Q1

REPORT INFORMATION
  Report Type: Report from Study
  Country: CA (occurrence: CA)
  Receive Date: 20210325
  Receipt Date: 20210325
  Transmission Date: 20210420
  Serious: Yes (Other)
  Sender: FDA-Public Use
  Company Number: NVSC2021CA059870

PATIENT
  Age: 94 Year
  Sex: Male

DRUGS (6)
  1. BEOVU [Suspect]
     Active Substance: BROLUCIZUMAB-DBLL
     Dosage: 0.05 ML (6/0.05MG/ML)
     Route: 031
     Dates: start: 20201216
  2. BEOVU [Suspect]
     Active Substance: BROLUCIZUMAB-DBLL
     Indication: NEOVASCULAR AGE-RELATED MACULAR DEGENERATION
     Dosage: 0.05 ML (6/0.05MG/ML)
     Route: 031
     Dates: start: 20191019
  3. BEOVU [Suspect]
     Active Substance: BROLUCIZUMAB-DBLL
     Dosage: 0.05 ML (6/0.05MG/ML)
     Route: 031
     Dates: start: 20201118
  4. BEOVU [Suspect]
     Active Substance: BROLUCIZUMAB-DBLL
     Dosage: 0.05 ML (6/0.05MG/ML)
     Route: 031
     Dates: start: 20201019
  5. BEOVU [Suspect]
     Active Substance: BROLUCIZUMAB-DBLL
     Dosage: 0.05 ML (6/0.05MG/ML)
     Route: 031
     Dates: start: 20210113
  6. BEOVU [Suspect]
     Active Substance: BROLUCIZUMAB-DBLL
     Dosage: 0.05 ML (6/0.05MG/ML)
     Route: 031
     Dates: start: 20210210

REACTIONS (2)
  - Endophthalmitis [Unknown]
  - Choroidal detachment [Unknown]

NARRATIVE: CASE EVENT DATE: 20210310
